FAERS Safety Report 13924222 (Version 2)
Quarter: 2017Q3

REPORT INFORMATION
  Report Type: Spontaneous
  Country: US (occurrence: US)
  Receive Date: 20170831
  Receipt Date: 20170831
  Transmission Date: 20171127
  Serious: Yes (Hospitalization, Other)
  Sender: FDA-Public Use
  Company Number: US-CIPLA LTD.-2017US15160

PATIENT

DRUGS (3)
  1. SERTRALINE [Suspect]
     Active Substance: SERTRALINE HYDROCHLORIDE
     Dosage: UNK
     Route: 065
  2. OXYCODONE [Suspect]
     Active Substance: OXYCODONE
     Dosage: UNK
     Route: 065
  3. LOPERAMIDE [Suspect]
     Active Substance: LOPERAMIDE
     Indication: DIARRHOEA
     Dosage: UNK, UP TO 40 TABLETS DAILY
     Route: 065

REACTIONS (8)
  - Loss of consciousness [Unknown]
  - Aspiration [Unknown]
  - Ileus [Unknown]
  - Shock [Recovering/Resolving]
  - Respiratory failure [Recovered/Resolved]
  - Pulseless electrical activity [Recovering/Resolving]
  - Intentional overdose [Unknown]
  - Acute respiratory distress syndrome [Recovered/Resolved]
